FAERS Safety Report 8418003-9 (Version None)
Quarter: 2012Q2

REPORT INFORMATION
  Report Type: 
  Country: None (occurrence: None)
  Receive Date: 20120607
  Receipt Date: 20120525
  Transmission Date: 20120825
  Serious: Yes (Hospitalization, Other)
  Sender: FDA-Public Use
  Company Number: US-SHIRE-ALL1-2012-02691

PATIENT
  Sex: Female
  Weight: 56.689 kg

DRUGS (10)
  1. UNKNOWN MEDICATION [Concomitant]
     Indication: BLOOD CHOLESTEROL INCREASED
     Dosage: UNK, 1X/DAY:QD
     Route: 048
     Dates: start: 20110101
  2. PREDNISONE TAB [Concomitant]
     Indication: SCLERODERMA
     Dosage: 5 MG, 1X/DAY:QD
     Route: 048
     Dates: start: 19900101
  3. SULFASALAZINE [Concomitant]
     Indication: SCLERODERMA
     Dosage: UNK, 1X/DAY:QD
     Route: 048
     Dates: start: 19900101
  4. TRICOR [Concomitant]
     Indication: BLOOD CHOLESTEROL INCREASED
     Dosage: UNK, 1X/DAY:QD
     Route: 048
     Dates: start: 20110101
  5. FOSRENOL [Suspect]
     Indication: HYPERPHOSPHATAEMIA
     Dosage: 1000 MG, 3X/DAY:TID
     Route: 048
     Dates: start: 20120101, end: 20120430
  6. FOSRENOL [Suspect]
     Dosage: UNK MG, 1/4 TO 1/2 OF A 1000 MG TABLET WITH OCCASIONAL SNACK
     Route: 048
     Dates: start: 20120101, end: 20120430
  7. ALLOPURINOL [Concomitant]
     Indication: SCLERODERMA
     Dosage: UNK, 1X/DAY:QD
     Route: 048
     Dates: start: 19900101
  8. UNKNOWN MEDICATION [Concomitant]
     Indication: BLOOD TRIGLYCERIDES INCREASED
  9. METHOCARBAMOL [Concomitant]
     Indication: MUSCLE SPASMS
     Dosage: UNK, AS REQ'D
     Route: 048
  10. TRICOR [Concomitant]
     Indication: BLOOD TRIGLYCERIDES INCREASED

REACTIONS (9)
  - NAUSEA [None]
  - NODULE [None]
  - INTESTINAL OBSTRUCTION [None]
  - INFLUENZA [None]
  - ABDOMINAL PAIN UPPER [None]
  - HYPERTENSION [None]
  - HAEMATOMA [None]
  - CHOLELITHIASIS [None]
  - GRAFT COMPLICATION [None]
